FAERS Safety Report 5457293-1 (Version None)
Quarter: 2007Q3

REPORT INFORMATION
  Report Type: 
  Country: None (occurrence: None)
  Receive Date: 20070918
  Receipt Date: 20070202
  Transmission Date: 20080115
  Serious: No
  Sender: FDA-Public Use
  Company Number: US-ASTRAZENECA-2007UW02272

PATIENT
  Age: 17 Year
  Sex: Female
  Weight: 52.6 kg

DRUGS (7)
  1. SEROQUEL [Suspect]
     Indication: ABNORMAL BEHAVIOUR
     Dosage: 25 MG IN THE AFTERNOON AND 50 MG HS
     Route: 048
     Dates: start: 20070128
  2. CARBATROL [Concomitant]
  3. LYRICA [Concomitant]
  4. LAMICTAL [Concomitant]
  5. LITHIUM CARBONATE [Concomitant]
  6. ABILIFY [Concomitant]
  7. ABILIFY [Concomitant]
     Dates: start: 20070101

REACTIONS (3)
  - AGITATION [None]
  - HYPERSOMNIA [None]
  - INAPPROPRIATE AFFECT [None]
